FAERS Safety Report 5229195-7 (Version None)
Quarter: 2007Q1

REPORT INFORMATION
  Report Type: 
  Country: None (occurrence: None)
  Receive Date: 20061201
  Receipt Date: 20060906
  Transmission Date: 20070707
  Serious: No
  Sender: FDA-Public Use
  Company Number: US200609001449

PATIENT
  Age: 53 Year
  Sex: Female

DRUGS (5)
  1. CYMBALTA [Suspect]
     Indication: COMPLEX REGIONAL PAIN SYNDROME
     Dosage: 60 MG
     Dates: start: 20060801, end: 20060801
  2. PREGABALIN (PREGABALIN) [Concomitant]
  3. RESTORIL [Concomitant]
  4. TRAZODONE HCL [Concomitant]
  5. ACIPHEX [Concomitant]

REACTIONS (1)
  - EAR PAIN [None]
